FAERS Safety Report 25675014 (Version 1)
Quarter: 2025Q3

REPORT INFORMATION
  Report Type: Spontaneous
  Country: CN (occurrence: CN)
  Receive Date: 20250813
  Receipt Date: 20250813
  Transmission Date: 20251020
  Serious: Yes (Hospitalization, Other)
  Sender: ABBVIE
  Company Number: CN-ABBVIE-6411577

PATIENT
  Age: 64 Year
  Sex: Male
  Weight: 50 kg

DRUGS (1)
  1. LOPINAVIR\RITONAVIR [Suspect]
     Active Substance: LOPINAVIR\RITONAVIR
     Indication: Prophylaxis against HIV infection
     Dosage: 4 TABLET
     Route: 048
     Dates: start: 20150701, end: 20250807

REACTIONS (5)
  - Renal failure [Unknown]
  - Sinus bradycardia [Recovering/Resolving]
  - Hepatitis C [Unknown]
  - Fanconi syndrome [Unknown]
  - Acquired immunodeficiency syndrome [Unknown]

NARRATIVE: CASE EVENT DATE: 20250807
